FAERS Safety Report 23858329 (Version 2)
Quarter: 2024Q4

REPORT INFORMATION
  Report Type: Spontaneous
  Country: BR (occurrence: BR)
  Receive Date: 20240515
  Receipt Date: 20241108
  Transmission Date: 20250115
  Serious: Yes (Other)
  Sender: GLAXOSMITHKLINE
  Company Number: BR-GLAXOSMITHKLINE-BR2023AMR126181

PATIENT

DRUGS (3)
  1. BENLYSTA [Suspect]
     Active Substance: BELIMUMAB
     Indication: Systemic lupus erythematosus
     Dosage: 400 MG, Q4W, FREEZE DIRED POWDER FOR INTRAVENOUS INFUSION, 5 X 120 MG
     Dates: start: 20230814
  2. BENLYSTA [Suspect]
     Active Substance: BELIMUMAB
     Dosage: 840 MG,7X120 MG
  3. BENLYSTA [Suspect]
     Active Substance: BELIMUMAB
     Dosage: UNK
     Route: 042

REACTIONS (11)
  - Tuberculosis [Recovered/Resolved]
  - Cough [Recovered/Resolved]
  - Decreased immune responsiveness [Recovered/Resolved]
  - Toothache [Recovered/Resolved]
  - Dental operation [Unknown]
  - Illness [Unknown]
  - Oropharyngeal pain [Recovered/Resolved]
  - Pharyngeal inflammation [Recovered/Resolved]
  - Wisdom teeth removal [Not Recovered/Not Resolved]
  - Product dose omission issue [Unknown]
  - Intentional dose omission [Unknown]

NARRATIVE: CASE EVENT DATE: 20230913
